FAERS Safety Report 4620017-1 (Version None)
Quarter: 2005Q1

REPORT INFORMATION
  Report Type: 
  Country: None (occurrence: None)
  Receive Date: 20050324
  Receipt Date: 20050310
  Transmission Date: 20050727
  Serious: Yes (Hospitalization)
  Sender: FDA-Public Use
  Company Number: DSA_25492_2004

PATIENT
  Age: 89 Year
  Sex: Female

DRUGS (10)
  1. ENALAPRIL MALEATE [Suspect]
     Indication: HYPERTENSION
     Dosage: 5 MG BID PO
     Route: 048
     Dates: start: 20040101, end: 20050114
  2. HALOPERIDOL [Suspect]
     Dosage: DF PO
     Route: 048
     Dates: start: 20040514, end: 20040721
  3. PIRIBEDIL [Suspect]
     Dosage: 100 MG Q DAY PO
     Route: 048
     Dates: start: 20040614, end: 20040721
  4. OMEPRAZOLE [Suspect]
     Dosage: 20 MG Q DAY
     Dates: end: 20050114
  5. HCTZ/TRIAMETERENE [Concomitant]
  6. ACETAMINOPHEN-CAFFEINE [Concomitant]
  7. ALPRAZOLAM [Concomitant]
  8. ISOSORBIDE MONONITRATE [Concomitant]
  9. NICERGOLINE [Concomitant]
  10. PROPOXYPHENE HCL [Concomitant]

REACTIONS (3)
  - DERMATITIS BULLOUS [None]
  - PEMPHIGOID [None]
  - THERAPY NON-RESPONDER [None]
